FAERS Safety Report 5113259-2 (Version None)
Quarter: 2006Q3

REPORT INFORMATION
  Report Type: 
  Country: None (occurrence: None)
  Receive Date: 20060922
  Receipt Date: 20060918
  Transmission Date: 20061208
  Serious: Yes (Death)
  Sender: FDA-Public Use
  Company Number: US-BRISTOL-MYERS SQUIBB COMPANY-13512629

PATIENT
  Age: 78 Year
  Sex: Female
  Weight: 45 kg

DRUGS (2)
  1. MEGACE [Suspect]
     Indication: INCREASED APPETITE
     Route: 048
  2. PLAVIX [Concomitant]
     Route: 048

REACTIONS (1)
  - DEATH [None]
